FAERS Safety Report 7213692-9 (Version None)
Quarter: 2011Q1

REPORT INFORMATION
  Report Type: 
  Country: None (occurrence: None)
  Receive Date: 20110106
  Receipt Date: 20101228
  Transmission Date: 20110831
  Serious: Yes (Other)
  Sender: FDA-Public Use
  Company Number: JP-PFIZER INC-2010163157

PATIENT
  Age: 81 Year
  Sex: Female

DRUGS (13)
  1. ASPIRIN [Concomitant]
     Indication: ANGINA PECTORIS
     Dosage: UNK
     Route: 048
     Dates: start: 20031108
  2. PURSENNID [Concomitant]
     Indication: CONSTIPATION
     Dosage: UNK
     Route: 048
     Dates: start: 20050807
  3. MAG-LAX [Concomitant]
     Indication: CONSTIPATION
     Dosage: UNK
     Route: 048
     Dates: start: 20050909
  4. LYRICA [Suspect]
     Indication: PAIN IN EXTREMITY
     Dosage: 50 MG DAILY
     Route: 048
     Dates: start: 20101022, end: 20101024
  5. LYRICA [Suspect]
     Dosage: 100 MG DAILY
     Route: 048
     Dates: start: 20101025, end: 20101103
  6. LYRICA [Suspect]
     Dosage: 50 MG DAILY
     Route: 048
     Dates: start: 20101104, end: 20101112
  7. LIPITOR [Concomitant]
     Indication: LIPID METABOLISM DISORDER
     Dosage: UNK
     Route: 048
     Dates: start: 19990720
  8. ALENDRONATE SODIUM [Concomitant]
     Indication: OSTEOPOROSIS
     Dosage: UNK
     Route: 048
     Dates: start: 20070920
  9. NORVASK [Concomitant]
     Indication: HYPERTENSION
     Dosage: UNK
     Route: 048
     Dates: start: 20000506
  10. FERROUS CITRATE [Concomitant]
     Indication: ANAEMIA
     Dosage: UNK
     Route: 048
     Dates: start: 19891002
  11. MEILAX [Concomitant]
     Indication: ANXIETY
     Dosage: UNK
     Route: 048
     Dates: start: 20080112
  12. ALFAROL [Concomitant]
     Indication: OSTEOPOROSIS
     Dosage: UNK
     Route: 048
     Dates: start: 20050404
  13. ASPARTATE CALCIUM [Concomitant]
     Indication: OSTEOPOROSIS
     Dosage: UNK
     Route: 048
     Dates: start: 20050404

REACTIONS (2)
  - MENTAL DISORDER [None]
  - CONSTIPATION [None]
